FAERS Safety Report 16215867 (Version 2)
Quarter: 2019Q3

REPORT INFORMATION
  Report Type: Spontaneous
  Country: US (occurrence: US)
  Receive Date: 20190419
  Receipt Date: 20190722
  Transmission Date: 20191004
  Serious: No
  Sender: FDA-Public Use
  Company Number: US-INSMED, INC.-US-INS-19-00381

PATIENT
  Sex: Female
  Weight: 58.11 kg

DRUGS (2)
  1. LAMIRA NEBULIZER SYSTEM [Suspect]
     Active Substance: DEVICE
  2. ARIKAYCE [Suspect]
     Active Substance: AMIKACIN
     Indication: MYCOBACTERIAL INFECTION
     Route: 055
     Dates: start: 20181219

REACTIONS (6)
  - Influenza [Recovering/Resolving]
  - Palpitations [Recovered/Resolved]
  - Product dose omission [Unknown]
  - Flatulence [Not Recovered/Not Resolved]
  - Sensation of foreign body [Recovered/Resolved]
  - Dysphonia [Not Recovered/Not Resolved]
